FAERS Safety Report 9050407 (Version 2)
Quarter: 2013Q1

REPORT INFORMATION
  Report Type: Spontaneous
  Country: US (occurrence: US)
  Receive Date: 20130205
  Receipt Date: 20130304
  Transmission Date: 20140127
  Serious: No
  Sender: FDA-Public Use
  Company Number: US-PFIZER INC-2013041219

PATIENT
  Age: 17 Year
  Sex: Male
  Weight: 68 kg

DRUGS (8)
  1. GENOTROPIN [Suspect]
     Indication: GROWTH HORMONE DEFICIENCY
     Dosage: 0.3 MG/KG/ WEEK
     Route: 058
     Dates: start: 20080908
  2. GENOTROPIN [Suspect]
     Indication: SMALL FOR DATES BABY
     Dosage: 0.53 MG/KG/ WEEK
     Route: 058
  3. GENOTROPIN [Suspect]
     Dosage: 0.4 MG/KG/ WEEK
     Route: 058
     Dates: end: 20120430
  4. ZOLOFT [Concomitant]
     Indication: ANXIETY
     Dosage: 50 MG, 1X/DAY
  5. ZOLOFT [Concomitant]
     Dosage: 100 MG, 1X/DAY
  6. ABILIFY [Concomitant]
     Indication: ANXIETY
     Dosage: 7.5 MG, 1X/DAY
     Dates: start: 200903
  7. INVANZ [Concomitant]
     Indication: ACNE
     Dosage: 20 MG, UNK
  8. DOXYCYCLINE [Concomitant]
     Indication: ACNE
     Dosage: 100 MG, UNK
     Dates: start: 2011

REACTIONS (1)
  - Skin hypertrophy [Not Recovered/Not Resolved]
